FAERS Safety Report 5593888-2 (Version None)
Quarter: 2007Q4

REPORT INFORMATION
  Report Type: 
  Country: None (occurrence: None)
  Receive Date: 20071218
  Receipt Date: 20070320
  Transmission Date: 20080405
  Serious: Yes (Hospitalization, Other)
  Sender: FDA-Public Use
  Company Number: 2007000909

PATIENT
  Age: 69 Year
  Sex: Female
  Weight: 68 kg

DRUGS (2)
  1. BEXTRA [Suspect]
     Indication: OSTEOARTHRITIS
     Dosage: 40 MG (20 MG,2 IN 1 D)
     Dates: start: 20020717
  2. BEXTRA [Suspect]
     Indication: PAIN
     Dosage: 40 MG (20 MG,2 IN 1 D)
     Dates: start: 20020717

REACTIONS (1)
  - MYOCARDIAL INFARCTION [None]
